FAERS Safety Report 20672774 (Version 1)
Quarter: 2022Q2

REPORT INFORMATION
  Report Type: Spontaneous
  Country: US (occurrence: US)
  Receive Date: 20220405
  Receipt Date: 20220405
  Transmission Date: 20220721
  Serious: Yes (Hospitalization, Other)
  Sender: FDA-Public Use
  Company Number: US-SAMSUNG BIOEPIS-SB-2022-07848

PATIENT
  Age: 78 Year
  Sex: Female

DRUGS (1)
  1. INFLIXIMAB [Suspect]
     Active Substance: INFLIXIMAB
     Indication: Psoriatic arthropathy
     Dosage: STARTED 4 MONTHS PRIOR/UNKNOWN
     Route: 065

REACTIONS (4)
  - Pericardial effusion [Recovering/Resolving]
  - Pericarditis [Unknown]
  - Ventricular hypokinesia [Unknown]
  - Product use issue [Unknown]
